FAERS Safety Report 5177156-9 (Version None)
Quarter: 2006Q4

REPORT INFORMATION
  Report Type: 
  Country: None (occurrence: None)
  Receive Date: 20061218
  Receipt Date: 20061208
  Transmission Date: 20070319
  Serious: Yes (Other)
  Sender: FDA-Public Use
  Company Number: PHNU2006DE04093

PATIENT
  Sex: Male
  Weight: 65 kg

DRUGS (1)
  1. ZOMETA [Suspect]
     Indication: OSTEOPOROSIS
     Dates: start: 20030101

REACTIONS (3)
  - DENTAL TREATMENT [None]
  - OSTEONECROSIS [None]
  - SEQUESTRECTOMY [None]
